FAERS Safety Report 12178776 (Version 1)
Quarter: 2016Q1

REPORT INFORMATION
  Report Type: Spontaneous
  Country: US (occurrence: None)
  Receive Date: 20160314
  Receipt Date: 20160314
  Transmission Date: 20160526
  Serious: No
  Sender: FDA-Public Use
  Company Number: None

PATIENT
  Age: 73 Year
  Sex: Male

DRUGS (1)
  1. ADCIRCA [Suspect]
     Active Substance: TADALAFIL
     Indication: HELMINTHIC INFECTION
     Dosage: 2 TABS DAILY ORAL
     Route: 048
     Dates: start: 20141010

REACTIONS (1)
  - Constipation [None]

NARRATIVE: CASE EVENT DATE: 20160311
